FAERS Safety Report 7037601-0 (Version None)
Quarter: 2010Q4

REPORT INFORMATION
  Report Type: 
  Country: None (occurrence: None)
  Receive Date: 20101011
  Receipt Date: 20100928
  Transmission Date: 20110411
  Serious: Yes (Hospitalization, Other)
  Sender: FDA-Public Use
  Company Number: PHHY2009IL32707

PATIENT
  Age: 11 Year
  Sex: Female
  Weight: 31 kg

DRUGS (3)
  1. EXJADE [Suspect]
     Indication: THALASSAEMIA
     Dosage: 875 MG PER DAY
     Route: 048
     Dates: start: 20070809, end: 20090707
  2. EXJADE [Suspect]
     Dosage: 30 MG/KG/D
     Route: 048
  3. BLOOD TRANSFUSION, AUXILIARY PRODUCTS [Concomitant]

REACTIONS (14)
  - BLOOD CREATININE INCREASED [None]
  - BLOOD UREA INCREASED [None]
  - DEHYDRATION [None]
  - DIARRHOEA [None]
  - FANCONI SYNDROME ACQUIRED [None]
  - GASTROENTERITIS [None]
  - GLYCOSURIA [None]
  - HYPOKALAEMIA [None]
  - HYPOPHOSPHATAEMIA [None]
  - LYSOZYME INCREASED [None]
  - METABOLIC ACIDOSIS [None]
  - PROTEIN URINE PRESENT [None]
  - PYREXIA [None]
  - VOMITING [None]
